FAERS Safety Report 6902908-1 (Version None)
Quarter: 2010Q3

REPORT INFORMATION
  Report Type: 
  Country: None (occurrence: None)
  Receive Date: 20100803
  Receipt Date: 20080825
  Transmission Date: 20110219
  Serious: No
  Sender: FDA-Public Use
  Company Number: US-PFIZER INC-2008071222

PATIENT
  Sex: Female
  Weight: 68.2 kg

DRUGS (1)
  1. LYRICA [Suspect]
     Indication: FIBROMYALGIA
     Dates: start: 20080101

REACTIONS (2)
  - CARDIAC STRESS TEST ABNORMAL [None]
  - HEART RATE IRREGULAR [None]
